FAERS Safety Report 10243956 (Version 1)
Quarter: 2014Q1

REPORT INFORMATION
  Report Type: Spontaneous
  Country: US (occurrence: None)
  Receive Date: 20140306
  Receipt Date: 20140306
  Transmission Date: 20141002
  Serious: Yes (Other)
  Sender: FDA-Public Use
  Company Number: 163-21880-13114404

PATIENT
  Age: 63 Year
  Sex: Male

DRUGS (6)
  1. REVLIMID (LENALIDOMIDE) (25 MILLIGRAM, CAPSULES) [Suspect]
     Indication: PLASMA CELL MYELOMA
     Dosage: 25 MG, 21 IN 28 D, PO
     Route: 048
     Dates: start: 20120914, end: 201303
  2. MULTIVITAMINS (MULTIVITAMINS) (UNKNOWN) [Concomitant]
  3. OMEGA 3 (FISH OIL) (UNKNOWN) [Concomitant]
  4. VITAMIN C (ASCORBIC ACID) (UNKNOWN) [Concomitant]
  5. ASPIRIN (ACETYLSALICYLIC ACID) (UNKNOWN) (ACETYLSALICYLIC ACID) [Concomitant]
  6. DECADRON (DEXAMETHASONE) (UNKNOWN) [Concomitant]

REACTIONS (1)
  - Deep vein thrombosis [None]
